FAERS Safety Report 5782937-4 (Version None)
Quarter: 2008Q2

REPORT INFORMATION
  Report Type: 
  Country: None (occurrence: None)
  Receive Date: 20080619
  Receipt Date: 20080605
  Transmission Date: 20081010
  Serious: Yes (Hospitalization)
  Sender: FDA-Public Use
  Company Number: FR-1166369

PATIENT
  Age: 67 Year
  Sex: Female

DRUGS (1)
  1. PATANOL [Suspect]
     Dosage: 1 GTT OU BID OPHTHALMIC
     Route: 047
     Dates: start: 20080514, end: 20080516

REACTIONS (7)
  - ACOUSTIC NEUROMA [None]
  - DYSGEUSIA [None]
  - EYE SWELLING [None]
  - FACIAL PALSY [None]
  - NAUSEA [None]
  - POISONING [None]
  - VOMITING [None]
